FAERS Safety Report 14238858 (Version 1)
Quarter: 2017Q4

REPORT INFORMATION
  Report Type: Report from Study
  Country: CA (occurrence: CA)
  Receive Date: 20171130
  Receipt Date: 20171130
  Transmission Date: 20180321
  Serious: Yes (Other)
  Sender: FDA-Public Use
  Company Number: CA-JNJFOC-20171112166

PATIENT
  Sex: Female
  Weight: 67 kg

DRUGS (1)
  1. STELARA [Suspect]
     Active Substance: USTEKINUMAB
     Indication: CROHN^S DISEASE
     Dosage: STRENGTH = 90 MG
     Route: 058
     Dates: start: 20170202

REACTIONS (3)
  - Muscular weakness [Not Recovered/Not Resolved]
  - Asthma [Not Recovered/Not Resolved]
  - Mastitis [Recovering/Resolving]

NARRATIVE: CASE EVENT DATE: 2017
